FAERS Safety Report 9564831 (Version 1)
Quarter: 2013Q3

REPORT INFORMATION
  Report Type: Report from Study
  Country: NL (occurrence: NL)
  Receive Date: 20130930
  Receipt Date: 20130930
  Transmission Date: 20140515
  Serious: Yes (Other)
  Sender: FDA-Public Use
  Company Number: PHHY2013NL108263

PATIENT
  Age: 64 Year
  Sex: Female

DRUGS (4)
  1. ACLASTA [Suspect]
     Indication: OSTEOPOROSIS
     Dosage: 5 MG, ONCE PER 52 WEEKS
     Route: 042
     Dates: start: 20120926
  2. ACLASTA [Suspect]
     Dosage: 5 MG, ONCE PER 52 WEEKS
     Route: 042
     Dates: start: 20130927
  3. ASCAL [Concomitant]
     Dosage: UNK
  4. METOPROLOL [Concomitant]
     Dosage: UNK

REACTIONS (2)
  - Cardiac failure [Recovered/Resolved]
  - Coronary artery occlusion [Unknown]
